FAERS Safety Report 5906121-6 (Version None)
Quarter: 2008Q4

REPORT INFORMATION
  Report Type: 
  Country: None (occurrence: None)
  Receive Date: 20081002
  Receipt Date: 20080925
  Transmission Date: 20090506
  Serious: Yes (Hospitalization, Other)
  Sender: FDA-Public Use
  Company Number: PHHY2008FR20391

PATIENT
  Sex: Male
  Weight: 70 kg

DRUGS (4)
  1. EXJADE [Suspect]
     Dosage: 500 MG, QD
     Route: 048
     Dates: start: 20070312, end: 20071231
  2. EXJADE [Suspect]
     Dosage: 1000 MG, QD
     Route: 048
     Dates: end: 20071231
  3. EXJADE [Suspect]
     Dosage: 1000 MG, QD
     Route: 048
     Dates: start: 20080129
  4. ORACILLINE [Concomitant]
     Dosage: UNK
     Dates: start: 20050101

REACTIONS (3)
  - ABDOMINAL PAIN [None]
  - DRUG INEFFECTIVE [None]
  - ILEUS [None]
